FAERS Safety Report 19959259 (Version 1)
Quarter: 2021Q4

REPORT INFORMATION
  Report Type: Spontaneous
  Country: US (occurrence: US)
  Receive Date: 20211013
  Receipt Date: 20211013
  Transmission Date: 20220303
  Serious: Yes (Hospitalization)
  Sender: FDA-Public Use
  Company Number: None

PATIENT
  Sex: Male

DRUGS (1)
  1. SUTENT [Suspect]
     Active Substance: SUNITINIB MALATE
     Indication: Renal cancer
     Dosage: TAKE ONE CAPSULE (25 MG TOTAL) BY MOUTH DAILY ON DAYS 1-14 EVERY 21 DAYS (2 WEEKS ON, 1 WEEK OFF)
     Route: 048
     Dates: start: 20210203

REACTIONS (2)
  - Pneumonia [None]
  - Therapy interrupted [None]
